FAERS Safety Report 23836306 (Version 1)
Quarter: 2024Q2

REPORT INFORMATION
  Report Type: Spontaneous
  Country: US (occurrence: US)
  Receive Date: 20240509
  Receipt Date: 20240509
  Transmission Date: 20240717
  Serious: Yes (Hospitalization, Other)
  Sender: FDA-Public Use
  Company Number: US-OTSUKA-2024_011706

PATIENT
  Sex: Male
  Weight: 229.06 kg

DRUGS (8)
  1. ABILIFY [Suspect]
     Active Substance: ARIPIPRAZOLE
     Indication: Schizoaffective disorder
     Dosage: 10MG OR 15MG
     Route: 065
  2. ABILIFY [Suspect]
     Active Substance: ARIPIPRAZOLE
     Indication: Bipolar disorder
  3. ABILIFY [Suspect]
     Active Substance: ARIPIPRAZOLE
     Indication: Major depression
  4. ABILIFY MAINTENA [Suspect]
     Active Substance: ARIPIPRAZOLE
     Indication: Schizoaffective disorder
     Dosage: 400 MG
     Route: 065
  5. ABILIFY MAINTENA [Suspect]
     Active Substance: ARIPIPRAZOLE
     Indication: Bipolar disorder
     Dosage: 300 MG
     Route: 065
  6. ABILIFY MAINTENA [Suspect]
     Active Substance: ARIPIPRAZOLE
     Indication: Major depression
  7. INVEGA [Suspect]
     Active Substance: PALIPERIDONE
     Indication: Product used for unknown indication
     Dosage: 156 MG
     Route: 065
  8. INVEGA [Suspect]
     Active Substance: PALIPERIDONE
     Dosage: 234 MG
     Route: 065

REACTIONS (15)
  - Leg amputation [Unknown]
  - Psychotic disorder [Unknown]
  - Suicidal ideation [Recovering/Resolving]
  - Weight increased [Unknown]
  - Nerve injury [Unknown]
  - Muscle injury [Unknown]
  - Sexual dysfunction [Unknown]
  - Visual impairment [Unknown]
  - Restless legs syndrome [Not Recovered/Not Resolved]
  - Aggression [Unknown]
  - Compulsions [Unknown]
  - Overdose [Unknown]
  - Imprisonment [Unknown]
  - Social problem [Unknown]
  - Product use in unapproved indication [Unknown]
